FAERS Safety Report 20746664 (Version 1)
Quarter: 2022Q2

REPORT INFORMATION
  Report Type: Spontaneous
  Country: IN (occurrence: IN)
  Receive Date: 20220425
  Receipt Date: 20220425
  Transmission Date: 20220720
  Serious: Yes (Other)
  Sender: FDA-Public Use
  Company Number: IN-LUPIN PHARMACEUTICALS INC.-2022-05976

PATIENT
  Age: 60 Year
  Sex: Female

DRUGS (9)
  1. TRIAMCINOLONE [Suspect]
     Active Substance: TRIAMCINOLONE
     Indication: Cystoid macular oedema
     Dosage: UNK (INJECTION)
  2. VANCOMYCIN [Suspect]
     Active Substance: VANCOMYCIN
     Indication: Endophthalmitis
     Dosage: UNK (1 MG/0.1 ML)
  3. CEFTAZIDIME [Suspect]
     Active Substance: CEFTAZIDIME
     Indication: Endophthalmitis
     Dosage: UNK ((2.25 MG/0.1 ML)
  4. DEXAMETHASONE [Suspect]
     Active Substance: DEXAMETHASONE
     Indication: Endophthalmitis
     Dosage: UNK ((0.4 MG/0.1 ML)
  5. OFLOXACIN [Concomitant]
     Active Substance: OFLOXACIN
     Indication: Antibiotic prophylaxis
     Dosage: UNK (ONE DAY PRIOR TO INJECTION AND THREE TIMES DAILY FOR FIVE DAYS AFTER INJECTION.)
     Route: 061
  6. PROPARACAINE [Concomitant]
     Active Substance: PROPARACAINE
     Indication: Local anaesthesia
     Dosage: UNK
     Route: 065
  7. POVIDONE-IODINE [Concomitant]
     Active Substance: POVIDONE-IODINE
     Indication: Product used for unknown indication
     Dosage: UNK (10% SOLUTION PUT INTO THE CONJUNCTIVAL SAC) (PERIORBITAL AREA WAS CLEANED WITH IT)
  8. POVIDONE-IODINE [Concomitant]
     Active Substance: POVIDONE-IODINE
     Dosage: UNK (5% DROP PUT INTO THE CONJUNCTIVAL SAC)
  9. SALINE [Concomitant]
     Active Substance: SODIUM CHLORIDE
     Indication: Product used for unknown indication
     Dosage: UNK (PERIORBITAL AREA WAS CLEANED WITH IT)

REACTIONS (2)
  - Endophthalmitis [Unknown]
  - Off label use [Unknown]
